FAERS Safety Report 5873317-1 (Version None)
Quarter: 2008Q3

REPORT INFORMATION
  Report Type: 
  Country: None (occurrence: None)
  Receive Date: 20080904
  Receipt Date: 20070403
  Transmission Date: 20090109
  Serious: Yes (Other)
  Sender: FDA-Public Use
  Company Number: 2007-00332FE

PATIENT
  Age: 38 Year
  Sex: Female

DRUGS (1)
  1. LUTRELEF (LUTRELEF) (GONADORELIN ACETATE) [Suspect]
     Indication: ANOVULATORY CYCLE
     Dosage: IV
     Route: 042
     Dates: start: 20070313, end: 20070313

REACTIONS (2)
  - DRUG HYPERSENSITIVITY [None]
  - HYPOTENSION [None]
